APPROVED DRUG PRODUCT: ISRADIPINE
Active Ingredient: ISRADIPINE
Strength: 5MG
Dosage Form/Route: CAPSULE;ORAL
Application: A077169 | Product #002 | TE Code: AB
Applicant: ELITE LABORATORIES INC
Approved: Apr 24, 2006 | RLD: No | RS: No | Type: RX